FAERS Safety Report 5191995-X (Version None)
Quarter: 2006Q4

REPORT INFORMATION
  Report Type: 
  Country: None (occurrence: None)
  Receive Date: 20061220
  Receipt Date: 20061205
  Transmission Date: 20070319
  Serious: Yes (Hospitalization)
  Sender: FDA-Public Use
  Company Number: 14829

PATIENT
  Age: 64 Year
  Sex: Male

DRUGS (8)
  1. PACLITAXEL [Suspect]
     Indication: NON-SMALL CELL LUNG CANCER
     Dosage: 215 MG PER_CYCLE
     Dates: start: 20060816, end: 20060816
  2. CARBOPLATIN [Suspect]
     Dosage: 650 MG PER_CYCLE
     Dates: start: 20060816, end: 20060816
  3. DMXAA [Suspect]
     Indication: NON-SMALL CELL LUNG CANCER
     Dosage: 2880 MG PER_CYCLE IV
     Route: 042
     Dates: start: 20060426, end: 20060918
  4. QUINAPRIL HCL [Concomitant]
  5. ATENOLOL [Concomitant]
  6. SIMVASTATIN [Concomitant]
  7. ASPIRIN [Concomitant]
  8. METOCLOPRAMIDE [Concomitant]

REACTIONS (8)
  - ASTHENIA [None]
  - BONE MARROW FAILURE [None]
  - DRUG TOXICITY [None]
  - DYSPNOEA EXERTIONAL [None]
  - FATIGUE [None]
  - HAEMOPTYSIS [None]
  - INFUSION SITE EXTRAVASATION [None]
  - NEUTROPENIC SEPSIS [None]
